FAERS Safety Report 7089280-4 (Version None)
Quarter: 2010Q4

REPORT INFORMATION
  Report Type: 
  Country: None (occurrence: None)
  Receive Date: 20101029
  Receipt Date: 20101022
  Transmission Date: 20110411
  Serious: Yes (Hospitalization, Other)
  Sender: FDA-Public Use
  Company Number: WAES 1007DEU00051

PATIENT
  Age: 51 Year
  Sex: Male

DRUGS (14)
  1. CANCIDAS [Suspect]
     Indication: ANTIFUNGAL PROPHYLAXIS
     Dosage: 70 MG/DAILY IV
     Route: 042
     Dates: start: 20100430, end: 20100430
  2. CANCIDAS [Suspect]
     Indication: ANTIFUNGAL PROPHYLAXIS
     Dosage: 50 MG/DAILY IV
     Route: 042
     Dates: start: 20100501, end: 20100507
  3. ACETAMINOPHEN [Concomitant]
  4. ERYTHROMYCIN [Concomitant]
  5. ETHNIYL ESTRADIOL (+) LEVONRGESTREL [Concomitant]
  6. FACTOR IX COMPLEX [Concomitant]
  7. FUROSEMIDE SODIUM [Concomitant]
  8. MAGNESIUM (UNSPECIFIED) [Concomitant]
  9. METHYLPREDNISOLONE [Concomitant]
  10. MUPIROCIN CALCIUM [Concomitant]
  11. MYCOPHENOLATE MOFETIL [Concomitant]
  12. PANTOPRAZOLE SODIUM [Concomitant]
  13. PHYTONADIONE [Concomitant]
  14. RIFAMPIN [Concomitant]

REACTIONS (3)
  - HEPATIC ARTERY OCCLUSION [None]
  - INCISIONAL HERNIA [None]
  - PLATELET COUNT ABNORMAL [None]
